FAERS Safety Report 21194216 (Version 2)
Quarter: 2022Q4

REPORT INFORMATION
  Report Type: Report from Study
  Country: US (occurrence: US)
  Receive Date: 20220810
  Receipt Date: 20221114
  Transmission Date: 20230113
  Serious: Yes (Other)
  Sender: FDA-Public Use
  Company Number: US-ABBVIE-22K-163-4496654-00

PATIENT
  Age: 67 Year
  Sex: Female

DRUGS (2)
  1. RINVOQ [Suspect]
     Active Substance: UPADACITINIB
     Indication: Rheumatoid arthritis
     Dosage: FORM STRENGTH: 15 MG
     Route: 048
     Dates: start: 202201
  2. RINVOQ [Suspect]
     Active Substance: UPADACITINIB
     Indication: Rheumatoid arthritis
     Dosage: FORM STRENGTH: 15 MG
     Route: 048

REACTIONS (9)
  - Foot deformity [Unknown]
  - Pain in extremity [Unknown]
  - Peripheral swelling [Unknown]
  - Musculoskeletal stiffness [Unknown]
  - Musculoskeletal stiffness [Unknown]
  - Night sweats [Recovered/Resolved]
  - Hyperhidrosis [Unknown]
  - Anxiety [Unknown]
  - Back pain [Unknown]

NARRATIVE: CASE EVENT DATE: 20220701
